FAERS Safety Report 15183042 (Version 2)
Quarter: 2019Q4

REPORT INFORMATION
  Report Type: Spontaneous
  Country: GB (occurrence: GB)
  Receive Date: 20180723
  Receipt Date: 20191227
  Transmission Date: 20200122
  Serious: Yes (Life-Threatening, Hospitalization, Other)
  Sender: FDA-Public Use
  Company Number: GB-CELLTRION INC.-2016GB009076

PATIENT

DRUGS (12)
  1. MYCOPHENOLATE MOFETIL. [Suspect]
     Active Substance: MYCOPHENOLATE MOFETIL
     Indication: IMMUNOSUPPRESSION
     Dosage: 2.5 G, UNK
     Route: 065
  2. PREDNISOLONE [PREDNISOLONE ACETATE] [Concomitant]
     Dosage: 40- 60 MG, QD
     Route: 065
  3. METHYLPREDNISOLONE                 /00049605/ [Concomitant]
     Indication: UVEITIS
     Dosage: 3 ? 1 G, UNK
     Route: 042
  4. SULFAMETHOXAZOLE [Concomitant]
     Active Substance: SULFAMETHOXAZOLE
     Indication: LYMPHOPENIA
     Dosage: 480 MG, 1/WEEK
  5. INFLIXIMAB (UNKNOWN) [Suspect]
     Active Substance: INFLIXIMAB
     Indication: UVEITIS
     Dosage: 5 MG/KG, WEEKS 0, 2, AND 6, AND 8-WEEKLY
     Route: 042
  6. PREDNISOLONE [PREDNISOLONE ACETATE] [Concomitant]
     Indication: UVEITIS
     Dosage: 1.5 MG/KG,UNK
     Route: 065
  7. PREDNISOLONE [PREDNISOLONE ACETATE] [Concomitant]
     Dosage: 20 MG, QD
     Route: 065
  8. PREDNISOLONE [PREDNISOLONE ACETATE] [Concomitant]
     Dosage: 40 MG, UNK
     Route: 065
  9. AZATHIOPRINE. [Suspect]
     Active Substance: AZATHIOPRINE
     Indication: UVEITIS
     Route: 065
  10. INFLIXIMAB (UNKNOWN) [Suspect]
     Active Substance: INFLIXIMAB
     Dosage: 5 MG/KG, UNK
     Route: 065
  11. TRIAMCINOLONE                      /00031902/ [Suspect]
     Active Substance: TRIAMCINOLONE ACETONIDE
     Indication: PRODUCT USED FOR UNKNOWN INDICATION
     Route: 031
  12. TRIMETHOPRIM. [Concomitant]
     Active Substance: TRIMETHOPRIM
     Indication: LYMPHOPENIA
     Dosage: 480 MG, 1/WEEK

REACTIONS (16)
  - Uveitis [Unknown]
  - Glaucoma [Unknown]
  - Macular oedema [Unknown]
  - Maculopathy [Unknown]
  - Sepsis [Unknown]
  - Pyrexia [Unknown]
  - Product use in unapproved indication [Unknown]
  - Macular fibrosis [Unknown]
  - Drug ineffective [Unknown]
  - Intestinal obstruction [Unknown]
  - Dyspnoea [Unknown]
  - Multiple organ dysfunction syndrome [Unknown]
  - Pneumonia [Unknown]
  - Cataract [Unknown]
  - Lower respiratory tract infection [Unknown]
  - Off label use [Unknown]
